FAERS Safety Report 6291705-9 (Version None)
Quarter: 2009Q3

REPORT INFORMATION
  Report Type: 
  Country: None (occurrence: None)
  Receive Date: 20090730
  Receipt Date: 20090723
  Transmission Date: 20100115
  Serious: Yes (Other)
  Sender: FDA-Public Use
  Company Number: BR-ELI_LILLY_AND_COMPANY-BR200907005412

PATIENT
  Sex: Female
  Weight: 46 kg

DRUGS (2)
  1. FORTEO [Suspect]
     Indication: OSTEOPOROSIS
     Dosage: 20 UG, DAILY (1/D)
     Route: 058
     Dates: start: 20080801, end: 20090101
  2. MODURETIC 5-50 [Concomitant]
     Indication: HYPERTENSION
     Dosage: 25 MG, DAILY (1/D)
     Route: 048

REACTIONS (4)
  - AORTIC VALVE INCOMPETENCE [None]
  - AORTIC VALVE SCLEROSIS [None]
  - BUNDLE BRANCH BLOCK RIGHT [None]
  - HEART RATE INCREASED [None]
